FAERS Safety Report 5014701-8 (Version None)
Quarter: 2006Q2

REPORT INFORMATION
  Report Type: 
  Country: None (occurrence: None)
  Receive Date: 20060522
  Receipt Date: 20060508
  Transmission Date: 20061013
  Serious: Yes (Hospitalization)
  Sender: FDA-Public Use
  Company Number: GAM-068-06-P

PATIENT
  Age: 26 Year
  Sex: Male

DRUGS (3)
  1. OCTAGAM [Suspect]
     Indication: SOLAR URTICARIA
     Dosage: 0.4 G/KG
     Route: 042
     Dates: start: 20060404, end: 20060409
  2. HYDROXYZINE HCL [Concomitant]
  3. PARACETAMOL [Concomitant]

REACTIONS (6)
  - HEADACHE [None]
  - NAUSEA [None]
  - PYREXIA [None]
  - SYNCOPE [None]
  - THROMBOCYTOPENIA [None]
  - VOMITING [None]
